FAERS Safety Report 23261638 (Version 1)
Quarter: 2023Q4

REPORT INFORMATION
  Report Type: Other
  Country: IT (occurrence: IT)
  Receive Date: 20231205
  Receipt Date: 20231205
  Transmission Date: 20240110
  Serious: Yes (Hospitalization)
  Sender: FDA-Public Use
  Company Number: None

PATIENT
  Sex: Female

DRUGS (2)
  1. IBUPROFEN [Suspect]
     Active Substance: IBUPROFEN
     Indication: Intentional overdose
     Dosage: QUANTIT? NON SPECIFICATA, TABLET
     Route: 048
     Dates: start: 20231110
  2. PAROXETINE [Suspect]
     Active Substance: PAROXETINE
     Indication: Intentional overdose
     Dosage: UNK
     Route: 048
     Dates: start: 20231110, end: 20231110

REACTIONS (5)
  - Sopor [None]
  - Depressed level of consciousness [None]
  - Lethargy [None]
  - Intentional overdose [None]
  - Off label use [Unknown]

NARRATIVE: CASE EVENT DATE: 20231110
